FAERS Safety Report 7741915-6 (Version None)
Quarter: 2011Q3

REPORT INFORMATION
  Report Type: 
  Country: None (occurrence: None)
  Receive Date: 20110907
  Receipt Date: 20110907
  Transmission Date: 20111222
  Serious: Yes (Hospitalization)
  Sender: FDA-Public Use
  Company Number: None

PATIENT
  Age: 68 Year
  Sex: Male
  Weight: 98.3 kg

DRUGS (2)
  1. CLOPIDOGREL [Suspect]
     Dosage: 75 MG EVERY DAY PO
     Route: 048
     Dates: start: 20080304, end: 20110825
  2. MELOXICAM [Suspect]
     Dosage: 7.5 MG EVERY DAY PO
     Route: 048
     Dates: start: 20110730, end: 20110825

REACTIONS (4)
  - ECG SIGNS OF MYOCARDIAL ISCHAEMIA [None]
  - UPPER GASTROINTESTINAL HAEMORRHAGE [None]
  - HAEMATOCRIT DECREASED [None]
  - DIZZINESS [None]
